FAERS Safety Report 8773104 (Version 1)
Quarter: 2012Q4

REPORT INFORMATION
  Report Type: 
  Country: JP (occurrence: JP)
  Receive Date: 20120907
  Receipt Date: 20120907
  Transmission Date: 20130627
  Serious: Yes (Death, Other)
  Sender: FDA-Public Use
  Company Number: PHHY2012JP019034

PATIENT
  Age: 54 Year
  Sex: Female
  Weight: 52 kg

DRUGS (2)
  1. IRINOTECAN [Suspect]
     Indication: COLON CANCER METASTATIC
     Dates: start: 200904
  2. LANSOPRAZOLE [Concomitant]
     Indication: GASTRITIS

REACTIONS (3)
  - Death [Fatal]
  - Colon cancer metastatic [Unknown]
  - Diarrhoea [Unknown]
